FAERS Safety Report 19828777 (Version 1)
Quarter: 2021Q3

REPORT INFORMATION
  Report Type: Spontaneous
  Country: US (occurrence: US)
  Receive Date: 20210914
  Receipt Date: 20210914
  Transmission Date: 20211014
  Serious: No
  Sender: FDA-Public Use
  Company Number: US-ABBVIE-21K-163-3836154-00

PATIENT
  Sex: Female

DRUGS (1)
  1. RINVOQ [Suspect]
     Active Substance: UPADACITINIB
     Indication: RHEUMATOID ARTHRITIS
     Route: 048
     Dates: start: 2021

REACTIONS (10)
  - Osteoarthritis [Unknown]
  - Haemorrhoids [Unknown]
  - Hepatic steatosis [Unknown]
  - Insulin resistance [Unknown]
  - Oedema [Unknown]
  - Pain [Unknown]
  - Rheumatoid arthritis [Unknown]
  - Haematochezia [Unknown]
  - Polyp [Unknown]
  - Neuropathy peripheral [Unknown]

NARRATIVE: CASE EVENT DATE: 2021
